FAERS Safety Report 21514541 (Version 3)
Quarter: 2022Q4

REPORT INFORMATION
  Report Type: Spontaneous
  Country: US (occurrence: US)
  Receive Date: 20221027
  Receipt Date: 20221206
  Transmission Date: 20230112
  Serious: No
  Sender: FDA-Public Use
  Company Number: US-Calliditas-2022CAL00447

PATIENT
  Age: 63 Year
  Sex: Male

DRUGS (7)
  1. TARPEYO [Suspect]
     Active Substance: BUDESONIDE
     Indication: IgA nephropathy
     Dosage: 16 MG (4 MG CAPSULES) ONCE DAILY
     Route: 048
     Dates: start: 20220629
  2. GLIMEPIRIDE [Concomitant]
     Active Substance: GLIMEPIRIDE
  3. TAMSULOSIN [Concomitant]
     Active Substance: TAMSULOSIN
  4. FAMOTIDINE [Concomitant]
     Active Substance: FAMOTIDINE
  5. ROSUVASTATIN [Concomitant]
     Active Substance: ROSUVASTATIN
  6. FENOFIBRATE [Concomitant]
     Active Substance: FENOFIBRATE
  7. LISINOPRIL [Concomitant]
     Active Substance: LISINOPRIL

REACTIONS (1)
  - Thirst [Not Recovered/Not Resolved]

NARRATIVE: CASE EVENT DATE: 20220601
